FAERS Safety Report 19824970 (Version 1)
Quarter: 2021Q3

REPORT INFORMATION
  Report Type: Spontaneous
  Country: US (occurrence: US)
  Receive Date: 20210913
  Receipt Date: 20210913
  Transmission Date: 20211014
  Serious: Yes (Life-Threatening, Hospitalization)
  Sender: FDA-Public Use
  Company Number: None

PATIENT
  Age: 71 Year
  Sex: Male
  Weight: 124.2 kg

DRUGS (10)
  1. RANEXA [Concomitant]
     Active Substance: RANOLAZINE
  2. XARELTO [Concomitant]
     Active Substance: RIVAROXABAN
  3. MIRTAZAPINE. [Concomitant]
     Active Substance: MIRTAZAPINE
  4. LOW DOSE ASPIRIN [Concomitant]
     Active Substance: ASPIRIN
  5. ZETIA [Concomitant]
     Active Substance: EZETIMIBE
  6. ATORVASTATIN [Concomitant]
     Active Substance: ATORVASTATIN
  7. STELARA [Suspect]
     Active Substance: USTEKINUMAB
     Indication: PSORIASIS
     Dosage: ?          OTHER FREQUENCY:EVERY 12 WEEKS;?
     Route: 058
     Dates: start: 20200611, end: 20210725
  8. MEXILETINE [Concomitant]
     Active Substance: MEXILETINE
  9. PAXIL [Concomitant]
     Active Substance: PAROXETINE HYDROCHLORIDE
  10. SOTALOL. [Concomitant]
     Active Substance: SOTALOL

REACTIONS (5)
  - Asthenia [None]
  - Bronchitis [None]
  - COVID-19 [None]
  - Balance disorder [None]
  - Weight increased [None]

NARRATIVE: CASE EVENT DATE: 20210808
